FAERS Safety Report 8507516-7 (Version None)
Quarter: 2012Q3

REPORT INFORMATION
  Report Type: 
  Country: None (occurrence: None)
  Receive Date: 20120713
  Receipt Date: 20120705
  Transmission Date: 20120928
  Serious: Yes (Hospitalization, Other)
  Sender: FDA-Public Use
  Company Number: US-009507513-1207USA001385

PATIENT

DRUGS (1)
  1. SINGULAIR [Suspect]
     Dosage: 4 MG, QD
     Route: 048

REACTIONS (2)
  - CONVULSION [None]
  - TONSILLAR DISORDER [None]
